FAERS Safety Report 11795507 (Version 1)
Quarter: 2015Q4

REPORT INFORMATION
  Report Type: Spontaneous
  Country: NL (occurrence: NL)
  Receive Date: 20151202
  Receipt Date: 20151202
  Transmission Date: 20160305
  Serious: Yes (Life-Threatening, Hospitalization, Disabling)
  Sender: FDA-Public Use
  Company Number: PHHY2015NL153800

PATIENT
  Age: 31 Year
  Sex: Male

DRUGS (2)
  1. OLANZAPINE. [Suspect]
     Active Substance: OLANZAPINE
     Indication: INSOMNIA
     Dosage: 2,5MG
     Route: 048
     Dates: start: 20140501, end: 20151109
  2. SEROXAT [Suspect]
     Active Substance: PAROXETINE HYDROCHLORIDE
     Indication: ANXIETY
     Dosage: 20MG
     Route: 048
     Dates: start: 19970501

REACTIONS (7)
  - Delusion [Recovering/Resolving]
  - Insomnia [Not Recovered/Not Resolved]
  - Loss of consciousness [Recovering/Resolving]
  - Weight decreased [Not Recovered/Not Resolved]
  - Panic attack [Not Recovered/Not Resolved]
  - Vomiting [Recovering/Resolving]
  - Muscle spasms [Recovering/Resolving]

NARRATIVE: CASE EVENT DATE: 19970501
